FAERS Safety Report 6769579-9 (Version None)
Quarter: 2010Q2

REPORT INFORMATION
  Report Type: 
  Country: None (occurrence: None)
  Receive Date: 20100615
  Receipt Date: 20100610
  Transmission Date: 20101027
  Serious: Yes (Death, Hospitalization)
  Sender: FDA-Public Use
  Company Number: PHHY2010US33633

PATIENT
  Sex: Male

DRUGS (1)
  1. GLEEVEC [Suspect]
     Dosage: 300 MG, DAILY
     Route: 048
     Dates: end: 20100516

REACTIONS (2)
  - LUNG NEOPLASM MALIGNANT [None]
  - PYREXIA [None]
